FAERS Safety Report 9757385 (Version 1)
Quarter: 2013Q4

REPORT INFORMATION
  Report Type: Spontaneous
  Country: IL (occurrence: IL)
  Receive Date: 20131214
  Receipt Date: 20131214
  Transmission Date: 20140711
  Serious: Yes (Death, Other)
  Sender: FDA-Public Use
  Company Number: IL-009507513-1312ISR003258

PATIENT
  Sex: 0

DRUGS (4)
  1. TEMOZOLOMIDE [Suspect]
     Indication: ASTROCYTOMA
     Route: 048
  2. TEMOZOLOMIDE [Interacting]
     Indication: GLIOBLASTOMA
  3. LEVETIRACETAM [Interacting]
     Indication: ASTROCYTOMA
  4. LEVETIRACETAM [Interacting]
     Indication: GLIOBLASTOMA

REACTIONS (2)
  - Hepatic failure [Fatal]
  - Drug interaction [Unknown]
